FAERS Safety Report 20507357 (Version 1)
Quarter: 2022Q1

REPORT INFORMATION
  Report Type: Spontaneous
  Country: US (occurrence: US)
  Receive Date: 20220223
  Receipt Date: 20220223
  Transmission Date: 20220424
  Serious: No
  Sender: FDA-Public Use
  Company Number: US-LUPIN PHARMACEUTICALS INC.-2022-02215

PATIENT
  Age: 55 Year
  Sex: Male

DRUGS (5)
  1. AZITHROMYCIN [Suspect]
     Active Substance: AZITHROMYCIN
     Indication: COVID-19 pneumonia
     Dosage: 500 MG, QD
     Route: 048
  2. HYDROXYCHLOROQUINE [Suspect]
     Active Substance: HYDROXYCHLOROQUINE
     Indication: COVID-19 pneumonia
     Dosage: 400 MG, QD
     Route: 065
  3. ATENOLOL [Concomitant]
     Active Substance: ATENOLOL
     Indication: Hypertension
     Dosage: 100 MG, QD
     Route: 065
  4. METHIMAZOLE [Concomitant]
     Active Substance: METHIMAZOLE
     Indication: Basedow^s disease
     Dosage: 10 MG, QD
     Route: 065
  5. HEPARIN [Concomitant]
     Active Substance: HEPARIN SODIUM
     Indication: Anticoagulant therapy
     Dosage: 5000 INTERNATIONAL UNIT, BID
     Route: 058

REACTIONS (1)
  - Off label use [Unknown]
